FAERS Safety Report 9932097 (Version 1)
Quarter: 2014Q1

REPORT INFORMATION
  Report Type: Spontaneous
  Country: US (occurrence: None)
  Receive Date: 20140227
  Receipt Date: 20140227
  Transmission Date: 20141002
  Serious: No
  Sender: FDA-Public Use
  Company Number: None

PATIENT
  Sex: Female
  Weight: 0 kg

DRUGS (1)
  1. TECFIDERA [Suspect]
     Route: 048

REACTIONS (2)
  - Flushing [None]
  - Pruritus [None]
